FAERS Safety Report 8116467-1 (Version None)
Quarter: 2012Q1

REPORT INFORMATION
  Report Type: 
  Country: None (occurrence: None)
  Receive Date: 20120206
  Receipt Date: 20120126
  Transmission Date: 20120608
  Serious: Yes (Other)
  Sender: FDA-Public Use
  Company Number: ZA-NOVOPROD-329993

PATIENT
  Age: 41 Year
  Sex: Female

DRUGS (1)
  1. LEVEMIR [Suspect]
     Indication: GESTATIONAL DIABETES
     Dosage: UNK
     Route: 065
     Dates: start: 20110416

REACTIONS (2)
  - MATERNAL EXPOSURE DURING PREGNANCY [None]
  - STILLBIRTH [None]
